FAERS Safety Report 10171156 (Version 4)
Quarter: 2014Q3

REPORT INFORMATION
  Report Type: Spontaneous
  Country: DE (occurrence: DE)
  Receive Date: 20140514
  Receipt Date: 20140811
  Transmission Date: 20150326
  Serious: Yes (Death, Hospitalization)
  Sender: FDA-Public Use
  Company Number: DE-BAYER-2014-069910

PATIENT
  Age: 55 Year
  Sex: Male

DRUGS (6)
  1. TOREM [Concomitant]
     Active Substance: TORSEMIDE
     Indication: PULMONARY HYPERTENSION
     Dosage: 20 MG, BID
     Route: 048
  2. IRENAT [Concomitant]
     Active Substance: POTASSIUM PERCHLORATE
  3. SPIRONOLACTONE. [Concomitant]
     Active Substance: SPIRONOLACTONE
     Indication: PULMONARY HYPERTENSION
     Dosage: 50 MG, QD
  4. ADEMPAS [Suspect]
     Active Substance: RIOCIGUAT
     Indication: PULMONARY HYPERTENSION
     Dosage: 0.5 MG, TID
     Dates: start: 201404, end: 20140507
  5. XARELTO [Suspect]
     Active Substance: RIVAROXABAN
     Indication: PULMONARY HYPERTENSION
  6. XARELTO [Suspect]
     Active Substance: RIVAROXABAN
     Indication: ANTICOAGULANT THERAPY
     Dosage: 20 MG, QD

REACTIONS (9)
  - Haematochezia [None]
  - Haemoptysis [None]
  - Pulmonary haemorrhage [Fatal]
  - Cardiac failure [Fatal]
  - Thrombocytopenia [Fatal]
  - Lower gastrointestinal haemorrhage [None]
  - Haemorrhagic diathesis [None]
  - Epistaxis [None]
  - Hyponatraemia [None]

NARRATIVE: CASE EVENT DATE: 20140506
